FAERS Safety Report 8268135-3 (Version None)
Quarter: 2012Q2

REPORT INFORMATION
  Report Type: 
  Country: None (occurrence: None)
  Receive Date: 20120409
  Receipt Date: 20120326
  Transmission Date: 20120825
  Serious: Yes (Other)
  Sender: FDA-Public Use
  Company Number: CA-ROCHE-1036131

PATIENT
  Sex: Female
  Weight: 59.02 kg

DRUGS (15)
  1. FOSAMAX [Concomitant]
     Indication: HYPERTENSION
  2. EPREX [Concomitant]
     Route: 058
  3. ACTEMRA [Suspect]
     Indication: RHEUMATOID ARTHRITIS
     Route: 042
     Dates: start: 20101027, end: 20111123
  4. VASOTEC [Concomitant]
     Indication: HYPERTENSION
  5. NORVASC [Concomitant]
     Indication: HYPERTENSION
  6. LUMIGAN [Concomitant]
     Route: 047
  7. ENBREL [Concomitant]
  8. MULTIVITAMIN [Concomitant]
  9. CALCIUM CARBONATE [Concomitant]
  10. SYNTHROID [Concomitant]
  11. PREDNISONE [Concomitant]
  12. METHOTREXATE [Concomitant]
  13. COSOPT [Concomitant]
     Route: 047
  14. VITAMIN D [Concomitant]
  15. IRON [Concomitant]

REACTIONS (2)
  - CARDIAC DISORDER [None]
  - MYOCARDIAL INFARCTION [None]
